FAERS Safety Report 6255529-0 (Version None)
Quarter: 2009Q2

REPORT INFORMATION
  Report Type: 
  Country: None (occurrence: None)
  Receive Date: 20090630
  Receipt Date: 20090615
  Transmission Date: 20091009
  Serious: Yes (Other)
  Sender: FDA-Public Use
  Company Number: PHHY2009GB23544

PATIENT
  Age: 72 Year
  Sex: Male

DRUGS (1)
  1. VISUDYNE [Suspect]
     Indication: CHOROIDAL NEOVASCULARISATION

REACTIONS (3)
  - CHORIORETINAL DISORDER [None]
  - EXUDATIVE RETINOPATHY [None]
  - VISUAL ACUITY REDUCED [None]
